FAERS Safety Report 8983188 (Version 1)
Quarter: 2012Q4

REPORT INFORMATION
  Report Type: 
  Country: BR (occurrence: BR)
  Receive Date: 20121224
  Receipt Date: 20121224
  Transmission Date: 20130627
  Serious: Yes (Hospitalization, Other)
  Sender: FDA-Public Use
  Company Number: PHHY2012BR119131

PATIENT
  Age: 86 None
  Sex: Female

DRUGS (1)
  1. DIOVAN [Suspect]
     Indication: HYPERTENSION
     Dosage: 80 mg, daily

REACTIONS (2)
  - Cerebral haematoma [Recovering/Resolving]
  - Dementia Alzheimer^s type [Unknown]
